FAERS Safety Report 4876432-4 (Version None)
Quarter: 2005Q4

REPORT INFORMATION
  Report Type: 
  Country: None (occurrence: None)
  Receive Date: 20051206
  Receipt Date: 20050829
  Transmission Date: 20060501
  Serious: Yes (Hospitalization)
  Sender: FDA-Public Use
  Company Number: USA050392900

PATIENT
  Age: 52 Year
  Sex: Male
  Weight: 91 kg

DRUGS (6)
  1. CYMBALTA [Suspect]
     Indication: DEPRESSION
     Dosage: 20 MG/2 DAY
     Dates: start: 20050219, end: 20050307
  2. CYMBALTA [Suspect]
     Indication: PAIN
     Dosage: 20 MG/2 DAY
     Dates: start: 20050219, end: 20050307
  3. NEXIUM [Concomitant]
  4. TRAZODONE HCL [Concomitant]
  5. TRIZIVIR [Concomitant]
  6. VIREAD [Concomitant]

REACTIONS (5)
  - ASTHENIA [None]
  - DEHYDRATION [None]
  - DYSGEUSIA [None]
  - SALIVARY HYPERSECRETION [None]
  - VIRAL INFECTION [None]
